FAERS Safety Report 16563666 (Version 16)
Quarter: 2020Q4

REPORT INFORMATION
  Report Type: Spontaneous
  Country: FR (occurrence: FR)
  Receive Date: 20190712
  Receipt Date: 20201228
  Transmission Date: 20210113
  Serious: Yes (Hospitalization, Disabling, Other)
  Sender: FDA-Public Use
  Company Number: FR-AUROBINDO-AUR-APL-2019-038400

PATIENT
  Age: 57 Year
  Sex: Female
  Weight: 68 kg

DRUGS (27)
  1. CELECOXIB ARROW 200 MG CAPSULES [Suspect]
     Active Substance: CELECOXIB
     Indication: RHEUMATIC DISORDER
     Dosage: UNK
     Route: 065
     Dates: start: 20151230, end: 20151230
  2. CELECOXIB ARROW 200 MG CAPSULES [Suspect]
     Active Substance: CELECOXIB
     Dosage: UNK
     Route: 065
     Dates: start: 20170207, end: 20170207
  3. CELECOXIB ARROW 200 MG CAPSULES [Suspect]
     Active Substance: CELECOXIB
     Dosage: UNK
     Route: 048
     Dates: start: 20200329, end: 20200507
  4. CELEBREX [Suspect]
     Active Substance: CELECOXIB
     Indication: BACK PAIN
     Dosage: 1 DOSAGE FORM, ONCE A DAY 7 TO 10 DAYS PER MONTH
     Route: 048
     Dates: start: 201506, end: 20190507
  5. CELEBREX [Suspect]
     Active Substance: CELECOXIB
     Dosage: UNK
     Route: 065
     Dates: start: 20171206
  6. CELEBREX [Suspect]
     Active Substance: CELECOXIB
     Dosage: UNK
     Route: 065
     Dates: start: 20170324, end: 20170324
  7. CELECOXIB ARROW 200 MG CAPSULES [Suspect]
     Active Substance: CELECOXIB
     Dosage: UNK
     Route: 065
     Dates: start: 20170627, end: 20170627
  8. CELECOXIB ZENTIVA [Suspect]
     Active Substance: CELECOXIB
     Dosage: UNK
     Route: 065
     Dates: start: 20151125, end: 20151125
  9. CELECOXIB TEVA [Suspect]
     Active Substance: CELECOXIB
     Dosage: UNK
     Route: 065
     Dates: end: 20200507
  10. AERIUS [Concomitant]
     Dosage: 1 DOSAGE FORM, ONCE A DAY
     Route: 065
  11. CELEBREX [Suspect]
     Active Substance: CELECOXIB
     Dosage: UNK
     Route: 065
     Dates: start: 20160506, end: 20161213
  12. CELEBREX [Suspect]
     Active Substance: CELECOXIB
     Dosage: UNK
     Route: 065
     Dates: start: 20180905
  13. CELECOXIB TEVA [Suspect]
     Active Substance: CELECOXIB
     Dosage: UNK
     Route: 065
     Dates: start: 20180125, end: 20180125
  14. CELECOXIB ARROW 200 MG CAPSULES [Suspect]
     Active Substance: CELECOXIB
     Indication: BACK PAIN
     Dosage: UNK
     Route: 065
     Dates: start: 20160229, end: 20160229
  15. CELECOXIB TEVA [Suspect]
     Active Substance: CELECOXIB
     Dosage: UNK
     Route: 065
     Dates: start: 20150204, end: 20150204
  16. CELECOXIB TEVA [Suspect]
     Active Substance: CELECOXIB
     Dosage: UNK
     Route: 065
     Dates: start: 20150403, end: 20150403
  17. BIOCALYPTOL [Concomitant]
     Indication: PRODUCT USED FOR UNKNOWN INDICATION
     Dosage: UNK
     Route: 065
  18. CELECOXIB ARROW 200 MG CAPSULES [Suspect]
     Active Substance: CELECOXIB
     Dosage: 200 MILLIGRAM, ONCE A DAY, AT NOON
     Route: 048
     Dates: start: 20190329, end: 20190507
  19. CELEBREX [Suspect]
     Active Substance: CELECOXIB
     Dosage: UNK
     Route: 065
     Dates: start: 20160402, end: 20160402
  20. CELEBREX [Suspect]
     Active Substance: CELECOXIB
     Dosage: UNK
     Route: 065
     Dates: start: 20190329
  21. CELECOXIB TEVA [Suspect]
     Active Substance: CELECOXIB
     Indication: BACK PAIN
     Dosage: UNK
     Route: 065
     Dates: start: 20150108, end: 20150109
  22. CELECOXIB ZENTIVA [Suspect]
     Active Substance: CELECOXIB
     Indication: PRODUCT USED FOR UNKNOWN INDICATION
     Dosage: UNK
     Route: 065
     Dates: start: 20150608, end: 20150610
  23. CELECOXIB ARROW 200 MG CAPSULES [Suspect]
     Active Substance: CELECOXIB
     Dosage: UNK
     Route: 065
     Dates: start: 20190329, end: 20190329
  24. CELECOXIB TEVA [Suspect]
     Active Substance: CELECOXIB
     Dosage: UNK
     Route: 065
     Dates: start: 20180125, end: 20190507
  25. OMEPRAZOLE. [Concomitant]
     Active Substance: OMEPRAZOLE
     Indication: PRODUCT USED FOR UNKNOWN INDICATION
     Dosage: 20 MILLIGRAM, DAILY, 1 TABLET PER DAY
     Route: 065
  26. OMEPRAZOLE. [Concomitant]
     Active Substance: OMEPRAZOLE
     Dosage: 1 DOSAGE FORM, ONCE A DAY
     Route: 065
  27. AERIUS [Concomitant]
     Indication: PRODUCT USED FOR UNKNOWN INDICATION
     Dosage: 5 MILLIGRAM, ONCE A DAY 1 TABLET AT NIGHT, FOR 1 MONTH
     Route: 065

REACTIONS (17)
  - Blindness [Not Recovered/Not Resolved]
  - Glaucoma [Not Recovered/Not Resolved]
  - Vision blurred [Not Recovered/Not Resolved]
  - Hypertension [Unknown]
  - Visual acuity reduced [Unknown]
  - Back pain [Recovered/Resolved]
  - Retinal haemorrhage [Not Recovered/Not Resolved]
  - Retinal vein occlusion [Not Recovered/Not Resolved]
  - Retinal vein thrombosis [Unknown]
  - Visual field defect [Unknown]
  - Ocular hypertension [Unknown]
  - Macular oedema [Not Recovered/Not Resolved]
  - Iris neovascularisation [Unknown]
  - Influenza like illness [Recovered/Resolved]
  - Papilloedema [Unknown]
  - Visual impairment [Not Recovered/Not Resolved]
  - Cough [Recovered/Resolved]

NARRATIVE: CASE EVENT DATE: 20160325
